FAERS Safety Report 15164803 (Version 1)
Quarter: 2018Q3

REPORT INFORMATION
  Report Type: Spontaneous
  Country: US (occurrence: US)
  Receive Date: 20180719
  Receipt Date: 20180719
  Transmission Date: 20181010
  Serious: No
  Sender: FDA-Public Use
  Company Number: US-SA-2018SA194417

PATIENT
  Age: 75 Year
  Sex: Female

DRUGS (18)
  1. BRILINTA [Concomitant]
     Active Substance: TICAGRELOR
  2. TEMAZEPAM. [Concomitant]
     Active Substance: TEMAZEPAM
  3. NYSTATIN. [Concomitant]
     Active Substance: NYSTATIN
  4. ALIROCUMAB PREFILLED PEN [Suspect]
     Active Substance: ALIROCUMAB
     Indication: HYPERLIPIDAEMIA
     Dosage: 75 MG, QOW
     Route: 058
     Dates: start: 20170615
  5. TERCONAZOLE. [Concomitant]
     Active Substance: TERCONAZOLE
  6. MONTELUKAST [Concomitant]
     Active Substance: MONTELUKAST SODIUM
  7. VITAMIN D [Concomitant]
     Active Substance: CHOLECALCIFEROL
  8. SULFAMETHOXAZOLE [Concomitant]
     Active Substance: SULFAMETHOXAZOLE
  9. ONDANSETRON [Concomitant]
     Active Substance: ONDANSETRON
  10. CETRIZINE [Concomitant]
     Active Substance: CETIRIZINE HYDROCHLORIDE
  11. PREDNISONE. [Concomitant]
     Active Substance: PREDNISONE
  12. PREVACID [Concomitant]
     Active Substance: LANSOPRAZOLE
  13. IRBESARTAN. [Concomitant]
     Active Substance: IRBESARTAN
  14. ASPIRIN [ACETYLSALICYLIC ACID] [Concomitant]
     Active Substance: ASPIRIN
  15. PRALUENT [Suspect]
     Active Substance: ALIROCUMAB
     Indication: HYPERLIPIDAEMIA
     Dosage: 75 MG, QOW
     Route: 058
     Dates: start: 20170615
  16. RESTASIS [Concomitant]
     Active Substance: CYCLOSPORINE
  17. RANITIDINE. [Concomitant]
     Active Substance: RANITIDINE
  18. PREMARIN [Concomitant]
     Active Substance: ESTROGENS, CONJUGATED

REACTIONS (1)
  - Urticaria [Unknown]

NARRATIVE: CASE EVENT DATE: 20180707
